FAERS Safety Report 21699865 (Version 1)
Quarter: 2022Q4

REPORT INFORMATION
  Report Type: Spontaneous
  Country: FI (occurrence: FI)
  Receive Date: 20221208
  Receipt Date: 20221208
  Transmission Date: 20230113
  Serious: Yes (Hospitalization)
  Sender: FDA-Public Use
  Company Number: None

PATIENT
  Age: 70 Year
  Sex: Female

DRUGS (8)
  1. ATORVASTATIN [Suspect]
     Active Substance: ATORVASTATIN
     Indication: Hyperlipidaemia
     Dosage: 10, MG, DAILY
     Dates: start: 20221001, end: 20221008
  2. FUROSEMIDE [Concomitant]
     Active Substance: FUROSEMIDE
     Dosage: 10,MG,DAILY
     Dates: start: 20210209
  3. SPIRIVA RESPIMAT [Concomitant]
     Active Substance: TIOTROPIUM BROMIDE
     Dosage: 2.5, MICROGRAM,DAILY
     Dates: start: 20210305
  4. ESTRADIOL [Concomitant]
     Active Substance: ESTRADIOL
     Dosage: 10, MICROGRAM, DAILY
     Dates: start: 20220928
  5. ASCORBIC ACID [Concomitant]
     Active Substance: ASCORBIC ACID
     Dosage: 500,MG,DAILY
  6. FLUTICASONE FUROATE [Concomitant]
     Active Substance: FLUTICASONE FUROATE
     Dosage: AS NECESSARY
     Dates: start: 20200316
  7. BRICANYL [Concomitant]
     Active Substance: TERBUTALINE SULFATE
     Dosage: AS NECESSARY
     Dates: start: 20210209
  8. BECLOMET [Concomitant]
     Dosage: 400, MICROGRAM, DAILY
     Dates: start: 20210712

REACTIONS (9)
  - Muscular weakness [Recovering/Resolving]
  - Myalgia [Recovering/Resolving]
  - Joint injury [Recovering/Resolving]
  - Muscle spasms [Recovering/Resolving]
  - Head injury [Recovering/Resolving]
  - Syncope [Recovering/Resolving]
  - Pain in extremity [Recovering/Resolving]
  - Loss of consciousness [Recovering/Resolving]
  - Neck injury [Recovering/Resolving]

NARRATIVE: CASE EVENT DATE: 20221008
